FAERS Safety Report 23718468 (Version 2)
Quarter: 2024Q2

REPORT INFORMATION
  Report Type: Spontaneous
  Country: GB (occurrence: GB)
  Receive Date: 20240408
  Receipt Date: 20240425
  Transmission Date: 20240716
  Serious: Yes (Death)
  Sender: FDA-Public Use
  Company Number: GB-MHRA-MED-202403191255425890-WFDJC

PATIENT
  Age: 36 Year
  Sex: Male
  Weight: 76 kg

DRUGS (2)
  1. RISPERIDONE [Suspect]
     Active Substance: RISPERIDONE
     Indication: Brain injury
     Dosage: 2 MG; ;
     Route: 065
     Dates: start: 20000303
  2. RITALIN [Suspect]
     Active Substance: METHYLPHENIDATE HYDROCHLORIDE
     Indication: Brain injury
     Dosage: 70 MG (10 TABLETS SPACED THROUGHOUT THE DAY); ;
     Route: 065

REACTIONS (1)
  - Sudden death [Fatal]

NARRATIVE: CASE EVENT DATE: 20230420
